FAERS Safety Report 19553396 (Version 1)
Quarter: 2021Q3

REPORT INFORMATION
  Report Type: Spontaneous
  Country: US (occurrence: US)
  Receive Date: 20210714
  Receipt Date: 20210714
  Transmission Date: 20211014
  Serious: No
  Sender: FDA-Public Use
  Company Number: US-GLAXOSMITHKLINE-US2021AMR138437

PATIENT
  Age: 67 Year
  Sex: Female
  Weight: 73.47 kg

DRUGS (7)
  1. SYNTHROID [Suspect]
     Active Substance: LEVOTHYROXINE SODIUM
     Dosage: 75 UG, QD
     Route: 048
     Dates: start: 20210615
  2. PFIZER?BIONTECH COVID?19 VACCINE [Concomitant]
     Active Substance: TOZINAMERAN
     Dosage: 1 DF
     Route: 030
     Dates: start: 20210210, end: 20210210
  3. PFIZER?BIONTECH COVID?19 VACCINE [Concomitant]
     Active Substance: TOZINAMERAN
     Dosage: 1 DF
     Route: 030
     Dates: start: 20210228, end: 20210228
  4. FLONASE [Suspect]
     Active Substance: FLUTICASONE PROPIONATE
     Indication: SEASONAL ALLERGY
     Dosage: UNK
  5. SYNTHROID [Suspect]
     Active Substance: LEVOTHYROXINE SODIUM
     Indication: HYPOTHYROIDISM
     Dosage: 75 UG, QD
     Route: 048
     Dates: start: 2005, end: 20210512
  6. ZYRTEC [Concomitant]
     Active Substance: CETIRIZINE HYDROCHLORIDE
     Indication: PRODUCT USED FOR UNKNOWN INDICATION
     Dosage: UNK
  7. SYNTHROID [Suspect]
     Active Substance: LEVOTHYROXINE SODIUM
     Dosage: 50 UG, QD
     Route: 048
     Dates: start: 20210513, end: 20210612

REACTIONS (17)
  - Blood thyroid stimulating hormone decreased [Recovered/Resolved]
  - Osteoarthritis [Recovered/Resolved]
  - Abdominal pain upper [Recovered/Resolved]
  - Blood thyroid stimulating hormone increased [Unknown]
  - Muscular weakness [Recovered/Resolved]
  - Tinnitus [Not Recovered/Not Resolved]
  - Thyroglobulin increased [Unknown]
  - Dizziness [Recovered/Resolved]
  - Diarrhoea [Recovered/Resolved]
  - Myalgia [Recovering/Resolving]
  - Myositis [Recovered/Resolved]
  - Joint range of motion decreased [Recovered/Resolved]
  - Feeling jittery [Recovered/Resolved]
  - Dysstasia [Unknown]
  - Red blood cell sedimentation rate increased [Unknown]
  - Ocular discomfort [Recovered/Resolved]
  - Palpitations [Recovering/Resolving]

NARRATIVE: CASE EVENT DATE: 202105
